FAERS Safety Report 5987946-8 (Version None)
Quarter: 2008Q4

REPORT INFORMATION
  Report Type: 
  Country: None (occurrence: None)
  Receive Date: 20081210
  Receipt Date: 20080416
  Transmission Date: 20090506
  Serious: No
  Sender: FDA-Public Use
  Company Number: US-AMGEN-KDL274309

PATIENT
  Sex: Female

DRUGS (6)
  1. ENBREL [Suspect]
     Indication: RHEUMATOID ARTHRITIS
     Route: 058
     Dates: start: 20080404, end: 20080409
  2. METHOTREXATE [Concomitant]
     Dates: start: 20060419, end: 20080416
  3. FOLIC ACID [Concomitant]
     Dates: start: 20060419
  4. AMBIEN [Concomitant]
     Dates: start: 20070510
  5. CELEBREX [Concomitant]
     Dates: start: 20080402
  6. BIOTIN [Concomitant]

REACTIONS (4)
  - CHILLS [None]
  - PNEUMONITIS [None]
  - PYREXIA [None]
  - TREMOR [None]
